FAERS Safety Report 11556753 (Version 1)
Quarter: 2015Q3

REPORT INFORMATION
  Report Type: Spontaneous
  Country: US (occurrence: US)
  Receive Date: 20150925
  Receipt Date: 20150925
  Transmission Date: 20151125
  Serious: No
  Sender: FDA-Public Use
  Company Number: US-009507513-1509USA012615

PATIENT
  Age: 38 Year
  Sex: Female

DRUGS (4)
  1. BELSOMRA [Suspect]
     Active Substance: SUVOREXANT
     Indication: INSOMNIA
     Dosage: 10 MG, QD
     Route: 048
     Dates: start: 20150922
  2. HYDROCODONE [Concomitant]
     Active Substance: HYDROCODONE
  3. XANAX [Concomitant]
     Active Substance: ALPRAZOLAM
  4. PROZAC [Concomitant]
     Active Substance: FLUOXETINE HYDROCHLORIDE

REACTIONS (9)
  - Back pain [Recovering/Resolving]
  - Musculoskeletal pain [Recovering/Resolving]
  - Drug ineffective [Recovering/Resolving]
  - Sleep disorder [Recovering/Resolving]
  - Feeling abnormal [Recovering/Resolving]
  - Pain [Recovering/Resolving]
  - Adverse event [Recovering/Resolving]
  - Headache [Recovering/Resolving]
  - Neck pain [Recovering/Resolving]

NARRATIVE: CASE EVENT DATE: 20150922
